FAERS Safety Report 5909714-5 (Version None)
Quarter: 2008Q4

REPORT INFORMATION
  Report Type: 
  Country: None (occurrence: None)
  Receive Date: 20081006
  Receipt Date: 20081006
  Transmission Date: 20090506
  Serious: Yes (Other)
  Sender: FDA-Public Use
  Company Number: None

PATIENT
  Sex: Male

DRUGS (1)
  1. VERAPAMIL [Suspect]

REACTIONS (3)
  - CONSTIPATION [None]
  - FLATULENCE [None]
  - SEXUAL DYSFUNCTION [None]
